FAERS Safety Report 22289468 (Version 1)
Quarter: 2023Q2

REPORT INFORMATION
  Report Type: Spontaneous
  Country: US (occurrence: None)
  Receive Date: 20230504
  Receipt Date: 20230504
  Transmission Date: 20230721
  Serious: Yes (Hospitalization, Other)
  Sender: FDA-Public Use
  Company Number: None

PATIENT
  Age: 78 Year
  Sex: Female
  Weight: 51.5 kg

DRUGS (2)
  1. CEFEPIME [Suspect]
     Active Substance: CEFEPIME HYDROCHLORIDE
     Indication: Bacterial infection
     Dosage: OTHER FREQUENCY : 3 TIMES A WEEK;?
     Route: 041
     Dates: start: 20230427, end: 20230427
  2. VANCOMYCIN [Concomitant]
     Active Substance: VANCOMYCIN
     Dates: start: 20230427

REACTIONS (6)
  - Dialysis [None]
  - Pruritus [None]
  - Urticaria [None]
  - Erythema [None]
  - Heart rate decreased [None]
  - Hypersensitivity [None]

NARRATIVE: CASE EVENT DATE: 20230427
